FAERS Safety Report 12039536 (Version 1)
Quarter: 2016Q1

REPORT INFORMATION
  Report Type: Report from Study
  Country: US (occurrence: US)
  Receive Date: 20160208
  Receipt Date: 20160208
  Transmission Date: 20160526
  Serious: Yes (Hospitalization, Other)
  Sender: FDA-Public Use
  Company Number: US-AMAG PHARMACEUTICALS, INC.-AMAG201500883

PATIENT

DRUGS (3)
  1. MAKENA [Suspect]
     Active Substance: HYDROXYPROGESTERONE CAPROATE
     Indication: PREMATURE DELIVERY
     Dosage: 250 MG, WEEKLY
     Route: 030
     Dates: start: 20150602, end: 20150807
  2. NIZORAL [Concomitant]
     Active Substance: KETOCONAZOLE
     Dosage: 2 %, UNK
     Dates: start: 20150507
  3. VITAFOL [Concomitant]
     Dosage: 1 CAP, UNK
     Dates: start: 20150408

REACTIONS (1)
  - Premature delivery [Unknown]

NARRATIVE: CASE EVENT DATE: 20150807
